FAERS Safety Report 9470985 (Version 1)
Quarter: 2013Q3

REPORT INFORMATION
  Report Type: Spontaneous
  Country: IT (occurrence: None)
  Receive Date: 20130816
  Receipt Date: 20130816
  Transmission Date: 20140515
  Serious: Yes (Other)
  Sender: FDA-Public Use
  Company Number: 1843559

PATIENT
  Sex: Female

DRUGS (1)
  1. IRINOTECAN HYDROCHLORIDE [Suspect]
     Indication: PRODUCT USED FOR UNKNOWN INDICATION

REACTIONS (5)
  - Pruritus [None]
  - Diarrhoea [None]
  - Hyperhidrosis [None]
  - Hypertension [None]
  - Vomiting [None]
